FAERS Safety Report 8867125 (Version 1)
Quarter: 2012Q4

REPORT INFORMATION
  Report Type: 
  Country: US (occurrence: US)
  Receive Date: 20121025
  Receipt Date: 20121025
  Transmission Date: 20130627
  Serious: No
  Sender: FDA-Public Use
  Company Number: US-AMGEN-USASP2012015000

PATIENT
  Age: 58 Year
  Sex: Female
  Weight: 54.42 kg

DRUGS (9)
  1. ENBREL [Suspect]
     Indication: PRODUCT USED FOR UNKNOWN INDICATION
     Dosage: 50 mg, qwk
     Route: 058
  2. METHOTREXATE [Concomitant]
     Dosage: 2.5 mg, UNK
  3. LISINOPRIL [Concomitant]
     Dosage: 5 mg, UNK
  4. PROZAC [Concomitant]
     Dosage: 10 mg, UNK
  5. FOLIC ACID [Concomitant]
     Dosage: UNK
  6. NIFEDIPINE [Concomitant]
     Dosage: 10 mg, UNK
  7. TRAZODONE [Concomitant]
     Dosage: 50 mg, UNK
  8. MULTIVITAMIN                       /00831701/ [Concomitant]
     Dosage: UNK
  9. VITAMIN D /00107901/ [Concomitant]
     Dosage: UNK

REACTIONS (1)
  - Papule [Unknown]
